FAERS Safety Report 21418886 (Version 1)
Quarter: 2022Q4

REPORT INFORMATION
  Report Type: Spontaneous
  Country: US (occurrence: US)
  Receive Date: 20221006
  Receipt Date: 20221006
  Transmission Date: 20230113
  Serious: No
  Sender: FDA-Public Use
  Company Number: US-MYLANLABS-2022M1097510

PATIENT
  Sex: Female
  Weight: 65.7 kg

DRUGS (1)
  1. METHYLPHENIDATE [Suspect]
     Active Substance: METHYLPHENIDATE
     Indication: Attention deficit hyperactivity disorder
     Dosage: 1.1 MILLIGRAM, QH
     Route: 062

REACTIONS (3)
  - Product adhesion issue [Unknown]
  - Product size issue [Unknown]
  - Product use issue [Unknown]
